FAERS Safety Report 11708820 (Version 1)
Quarter: 2015Q4

REPORT INFORMATION
  Report Type: Spontaneous
  Country: US (occurrence: US)
  Receive Date: 20151104
  Receipt Date: 20151104
  Transmission Date: 20160304
  Serious: No
  Sender: FDA-Public Use
  Company Number: US-ELI_LILLY_AND_COMPANY-US201107002483

PATIENT
  Age: 80 Year
  Sex: Female

DRUGS (2)
  1. FORTEO [Suspect]
     Active Substance: TERIPARATIDE
     Dosage: 20 UG, QD
  2. FORTEO [Suspect]
     Active Substance: TERIPARATIDE
     Indication: OSTEOPOROSIS
     Dosage: 20 UG, QD
     Dates: start: 20110623

REACTIONS (13)
  - Vomiting [Unknown]
  - Drug hypersensitivity [Unknown]
  - Muscle spasms [Unknown]
  - Musculoskeletal pain [Not Recovered/Not Resolved]
  - Screaming [Unknown]
  - Intentional product misuse [Unknown]
  - Musculoskeletal disorder [Not Recovered/Not Resolved]
  - Arthralgia [Unknown]
  - Pain [Not Recovered/Not Resolved]
  - Pain in extremity [Unknown]
  - Pain [Unknown]
  - Crying [Unknown]
  - Middle insomnia [Unknown]

NARRATIVE: CASE EVENT DATE: 201107
